FAERS Safety Report 4457097-2 (Version None)
Quarter: 2004Q3

REPORT INFORMATION
  Report Type: 
  Country: None (occurrence: None)
  Receive Date: 20040923
  Receipt Date: 20040913
  Transmission Date: 20050211
  Serious: Yes (Life-Threatening, Hospitalization)
  Sender: FDA-Public Use
  Company Number: GB-ABBOTT-04P-167-0273253-00

PATIENT
  Age: 61 Year
  Sex: Male

DRUGS (11)
  1. CLARITHROMYCIN [Suspect]
     Indication: ASTHMA EXACERBATION PROPHYLAXIS
     Route: 048
     Dates: start: 20040726, end: 20040729
  2. CLARITHROMYCIN [Suspect]
     Indication: LOWER RESPIRATORY TRACT INFECTION
  3. CITALOPRAM [Concomitant]
     Indication: DEPRESSION
     Route: 048
     Dates: start: 20040821
  4. ZOPICLONE [Concomitant]
     Indication: SEDATION
     Route: 048
     Dates: start: 19990317
  5. ALBUTEROL [Concomitant]
     Indication: ASTHMA
     Route: 055
     Dates: start: 20010101
  6. DIHYDROCODEINE [Concomitant]
     Indication: POST HERPETIC NEURALGIA
     Route: 048
     Dates: start: 20010101
  7. PREDNISOLONE [Concomitant]
     Indication: ASTHMA
     Route: 048
     Dates: start: 20040506
  8. CAPSAICIN [Concomitant]
     Indication: POST HERPETIC NEURALGIA
     Route: 061
     Dates: start: 20010101
  9. MORPHINE [Concomitant]
     Indication: POST HERPETIC NEURALGIA
     Route: 048
     Dates: start: 20020101
  10. BECLOMETHASONE DIPROPIONATE [Concomitant]
     Indication: ASTHMA
     Route: 055
     Dates: start: 19950101
  11. SALMETEROL [Concomitant]
     Indication: ASTHMA
     Route: 055
     Dates: start: 20040119

REACTIONS (2)
  - AKATHISIA [None]
  - CONFUSIONAL STATE [None]
